FAERS Safety Report 6979438-4 (Version None)
Quarter: 2010Q3

REPORT INFORMATION
  Report Type: 
  Country: None (occurrence: None)
  Receive Date: 20100908
  Receipt Date: 20100830
  Transmission Date: 20110219
  Serious: Yes (Hospitalization, Disabling, Other)
  Sender: FDA-Public Use
  Company Number: 017117

PATIENT
  Sex: Female
  Weight: 45 kg

DRUGS (4)
  1. NEUPRO [Suspect]
     Indication: PARKINSON'S DISEASE
     Dosage: (2 MG QD TRANSDERMAL)
     Route: 062
     Dates: start: 20100629
  2. ISICOM (ISICOM) (NOT SPECIFIED) [Suspect]
     Indication: PARKINSON'S DISEASE
     Dosage: (125 MG 6X/DAY)
     Dates: start: 19950516
  3. ENALAPRIL MALEATE [Suspect]
     Indication: HYPERTENSION
     Dosage: (10 MG BID)
     Dates: start: 20090525
  4. INDAPAMIDE (RAWEL) [Suspect]
     Indication: HYPERTENSION
     Dosage: (1.5 MG QD)
     Dates: start: 20090525

REACTIONS (5)
  - DIZZINESS [None]
  - FALL [None]
  - FEMUR FRACTURE [None]
  - HYPOTENSION [None]
  - TRANSIENT ISCHAEMIC ATTACK [None]
